FAERS Safety Report 6440434-7 (Version None)
Quarter: 2009Q4

REPORT INFORMATION
  Report Type: 
  Country: None (occurrence: None)
  Receive Date: 20091113
  Receipt Date: 20091015
  Transmission Date: 20100525
  Serious: No
  Sender: FDA-Public Use
  Company Number: US-BAYER-200936125NA

PATIENT
  Sex: Male

DRUGS (3)
  1. CIPRO [Suspect]
     Indication: DRUG USE FOR UNKNOWN INDICATION
  2. ACIDOPHILUS [Concomitant]
  3. GLUCOSAMINE CHONDROITIN [Concomitant]

REACTIONS (1)
  - ADVERSE EVENT [None]
